FAERS Safety Report 18832532 (Version 32)
Quarter: 2024Q2

REPORT INFORMATION
  Report Type: Report from Study
  Country: US (occurrence: US)
  Receive Date: 20210203
  Receipt Date: 20240615
  Transmission Date: 20240716
  Serious: Yes (Other)
  Sender: FDA-Public Use
  Company Number: US-TAKEDA-US202008916

PATIENT
  Sex: Female
  Weight: 61 kg

DRUGS (17)
  1. HUMAN IMMUNOGLOBULIN G\HYALURONIDASE RECOMBINANT HUMAN [Suspect]
     Active Substance: HUMAN IMMUNOGLOBULIN G\HYALURONIDASE (HUMAN RECOMBINANT)
     Indication: Primary immunodeficiency syndrome
     Dosage: 10 GRAM, Q2WEEKS
     Route: 058
     Dates: start: 20210326
  2. HUMAN IMMUNOGLOBULIN G\HYALURONIDASE RECOMBINANT HUMAN [Suspect]
     Active Substance: HUMAN IMMUNOGLOBULIN G\HYALURONIDASE (HUMAN RECOMBINANT)
     Indication: Immunodeficiency common variable
     Dosage: UNK UNK, Q5WEEKS
     Route: 065
  3. HUMAN IMMUNOGLOBULIN G\HYALURONIDASE RECOMBINANT HUMAN [Suspect]
     Active Substance: HUMAN IMMUNOGLOBULIN G\HYALURONIDASE (HUMAN RECOMBINANT)
     Indication: Immune system disorder
     Dosage: UNK
     Route: 058
  4. COVID-19 VACCINE NOS [Suspect]
     Active Substance: COVID-19 VACCINE
     Indication: COVID-19 immunisation
     Dosage: UNK
     Route: 065
  5. BENADRYL [Concomitant]
     Active Substance: DIPHENHYDRAMINE HYDROCHLORIDE
     Dosage: UNK
     Route: 065
  6. ACETAMINOPHEN [Concomitant]
     Active Substance: ACETAMINOPHEN
     Dosage: UNK
     Route: 065
  7. SODIUM CHLORIDE [Concomitant]
     Active Substance: SODIUM CHLORIDE
     Dosage: UNK
     Route: 065
  8. SODIUM CHLORIDE [Concomitant]
     Active Substance: SODIUM CHLORIDE
     Dosage: UNK
     Route: 065
  9. EPINEPHRINE [Concomitant]
     Active Substance: EPINEPHRINE
     Dosage: UNK
     Route: 065
  10. Lmx [Concomitant]
     Dosage: UNK
     Route: 065
  11. PEPCID [Concomitant]
     Active Substance: FAMOTIDINE
     Dosage: UNK
     Route: 065
  12. SOLU-MEDROL [Concomitant]
     Active Substance: METHYLPREDNISOLONE SODIUM SUCCINATE
     Dosage: UNK
     Route: 065
  13. PREDNISONE [Concomitant]
     Active Substance: PREDNISONE
     Dosage: UNK
     Route: 065
  14. LORATADINE [Concomitant]
     Active Substance: LORATADINE
     Dosage: UNK
     Route: 065
  15. GABAPENTIN [Concomitant]
     Active Substance: GABAPENTIN
     Dosage: UNK
     Route: 065
  16. ASPIRIN [Concomitant]
     Active Substance: ASPIRIN
     Dosage: UNK
     Route: 065
  17. DIPHENHYDRAMINE [Concomitant]
     Active Substance: DIPHENHYDRAMINE
     Dosage: UNK
     Route: 065

REACTIONS (75)
  - Systemic lupus erythematosus [Unknown]
  - Precancerous lesion of digestive tract [Unknown]
  - Hepatic haematoma [Unknown]
  - Transient ischaemic attack [Unknown]
  - Fear of disease [Unknown]
  - Poor quality sleep [Unknown]
  - Discomfort [Unknown]
  - Pain [Recovering/Resolving]
  - Sinonasal obstruction [Unknown]
  - Ear discomfort [Unknown]
  - Anxiety [Unknown]
  - Paraesthesia [Unknown]
  - Infusion site pain [Unknown]
  - Vomiting [Unknown]
  - Headache [Unknown]
  - Nausea [Unknown]
  - Migraine with aura [Unknown]
  - Herpes zoster [Unknown]
  - Drug hypersensitivity [Unknown]
  - Ophthalmic migraine [Unknown]
  - Oral herpes [Unknown]
  - Eye ulcer [Unknown]
  - Nightmare [Unknown]
  - Infusion site mass [Unknown]
  - Blood pressure increased [Unknown]
  - Fatigue [Unknown]
  - Visual impairment [Unknown]
  - Immunoglobulins decreased [Unknown]
  - Agitation [Unknown]
  - Immunoglobulins abnormal [Unknown]
  - Infusion site urticaria [Unknown]
  - Illness [Unknown]
  - Dehydration [Unknown]
  - Feeling of body temperature change [Unknown]
  - Chronic obstructive pulmonary disease [Unknown]
  - Bronchitis chronic [Unknown]
  - Peripheral swelling [Unknown]
  - Tenderness [Unknown]
  - Electrocardiogram abnormal [Unknown]
  - Gastritis [Unknown]
  - Cardiac disorder [Unknown]
  - Diverticulum intestinal [Unknown]
  - Oral pain [Unknown]
  - Mouth swelling [Unknown]
  - Gastrooesophageal reflux disease [Unknown]
  - Tooth infection [Unknown]
  - Blood calcium abnormal [Unknown]
  - COVID-19 [Unknown]
  - Fungal infection [Unknown]
  - Oral lichen planus [Unknown]
  - Bone pain [Unknown]
  - Ear infection [Unknown]
  - Fibromyalgia [Unknown]
  - Swollen tongue [Unknown]
  - Aphthous ulcer [Unknown]
  - Stress [Unknown]
  - Allergy to plants [Unknown]
  - Back injury [Unknown]
  - Muscle spasms [Unknown]
  - Blood cholesterol increased [Unknown]
  - Skin exfoliation [Unknown]
  - Cough [Unknown]
  - Chest discomfort [Recovering/Resolving]
  - Migraine [Unknown]
  - Pain in extremity [Unknown]
  - Abdominal pain upper [Unknown]
  - Infusion site bruising [Unknown]
  - Infusion site haemorrhage [Unknown]
  - Dizziness [Unknown]
  - Urticaria [Unknown]
  - Incorrect drug administration rate [Unknown]
  - Device infusion issue [Recovered/Resolved]
  - Needle issue [Unknown]
  - Product dispensing error [Unknown]
  - Inappropriate schedule of product administration [Unknown]
